FAERS Safety Report 8915707 (Version 2)
Quarter: 2012Q4

REPORT INFORMATION
  Report Type: 
  Country: US (occurrence: US)
  Receive Date: 20121119
  Receipt Date: 20121228
  Transmission Date: 20130627
  Serious: Yes (Hospitalization)
  Sender: FDA-Public Use
  Company Number: US-GILEAD-2012-0062709

PATIENT
  Sex: Male

DRUGS (1)
  1. LETAIRIS [Suspect]
     Indication: PULMONARY ARTERIAL HYPERTENSION
     Dosage: 5 mg, QD
     Route: 048
     Dates: start: 20080630

REACTIONS (5)
  - Pneumonia [Unknown]
  - Fluid retention [Unknown]
  - Bacterial infection [Unknown]
  - Oedema peripheral [Unknown]
  - Oedema [Unknown]
